FAERS Safety Report 24951934 (Version 1)
Quarter: 2025Q1

REPORT INFORMATION
  Report Type: Spontaneous
  Country: US (occurrence: None)
  Receive Date: 20250205
  Receipt Date: 20250205
  Transmission Date: 20250409
  Serious: Yes (Other)
  Sender: FDA-CTU
  Company Number: None

PATIENT
  Age: 82 Year
  Sex: Male
  Weight: 72.6 kg

DRUGS (1)
  1. CEFTRIAXONE [Suspect]
     Active Substance: CEFTRIAXONE
     Dates: start: 202501, end: 202501

REACTIONS (8)
  - Feeling hot [None]
  - Dyspnoea [None]
  - Unresponsive to stimuli [None]
  - Infusion related reaction [None]
  - Cardio-respiratory arrest [None]
  - Hyperhidrosis [None]
  - Nausea [None]
  - Anaphylactic reaction [None]

NARRATIVE: CASE EVENT DATE: 20250130
